FAERS Safety Report 19748461 (Version 3)
Quarter: 2021Q4

REPORT INFORMATION
  Report Type: Spontaneous
  Country: US (occurrence: US)
  Receive Date: 20210826
  Receipt Date: 20211012
  Transmission Date: 20220303
  Serious: Yes (Other)
  Sender: FDA-Public Use
  Company Number: US-JNJFOC-20210837983

PATIENT
  Age: 70 Year
  Sex: Female

DRUGS (29)
  1. ELMIRON [Suspect]
     Active Substance: PENTOSAN POLYSULFATE SODIUM
     Indication: Cystitis interstitial
     Route: 048
     Dates: start: 19970410, end: 19990328
  2. ELMIRON [Suspect]
     Active Substance: PENTOSAN POLYSULFATE SODIUM
     Route: 048
     Dates: start: 20140615, end: 20210928
  3. PROCARDIA [Concomitant]
     Active Substance: NIFEDIPINE
     Indication: Chest pain
     Route: 065
     Dates: start: 19950216, end: 19980502
  4. ORTHO-NOVUM [MESTRANOL;NORETHISTERONE] [Concomitant]
     Indication: Contraception
     Route: 065
     Dates: start: 19950217, end: 19971220
  5. PROZAC [Concomitant]
     Active Substance: FLUOXETINE HYDROCHLORIDE
     Indication: Depression
     Route: 065
     Dates: start: 19950317, end: 19990508
  6. HYDROXYCHLOROQUINE [Concomitant]
     Active Substance: HYDROXYCHLOROQUINE
     Indication: Arthritis
     Route: 065
     Dates: start: 19960215, end: 19980928
  7. RANITIDINE [Concomitant]
     Active Substance: RANITIDINE
     Indication: Hiatus hernia
     Route: 065
     Dates: start: 19970822, end: 19990910
  8. FLUTICASONE [Concomitant]
     Active Substance: FLUTICASONE
     Indication: Multiple allergies
     Route: 065
     Dates: start: 20080107, end: 20150109
  9. NITROFURANTOIN MONOHYDRATE [Concomitant]
     Active Substance: NITROFURANTOIN MONOHYDRATE
     Indication: Cystitis
     Route: 065
     Dates: start: 20090522, end: 20150511
  10. KLOR-CON [Concomitant]
     Active Substance: POTASSIUM CHLORIDE
     Route: 065
     Dates: start: 20110911
  11. GABAPENTIN [Concomitant]
     Active Substance: GABAPENTIN
     Indication: Bladder pain
     Route: 065
     Dates: start: 20120406
  12. MYRBETRIQ [Concomitant]
     Active Substance: MIRABEGRON
     Indication: Hypertonic bladder
     Route: 065
     Dates: start: 20141006
  13. AMITIZA [Concomitant]
     Active Substance: LUBIPROSTONE
     Indication: Constipation
     Route: 065
     Dates: start: 20141220, end: 20190913
  14. TRAMADOL [Concomitant]
     Active Substance: TRAMADOL
     Indication: Arthralgia
     Route: 065
     Dates: start: 20151023
  15. SULINDAC [Concomitant]
     Active Substance: SULINDAC
     Indication: Arthritis
     Route: 065
     Dates: start: 20151124
  16. FLUOXETINE [Concomitant]
     Active Substance: FLUOXETINE HYDROCHLORIDE
     Indication: Depression
     Route: 065
     Dates: start: 20151212
  17. OMEPRAZOLE [Concomitant]
     Active Substance: OMEPRAZOLE
     Indication: Hiatus hernia
     Route: 065
     Dates: start: 20160628
  18. OMEPRAZOLE [Concomitant]
     Active Substance: OMEPRAZOLE
     Indication: Dyspepsia
  19. AZITHROMYCIN ANHYDROUS [Concomitant]
     Active Substance: AZITHROMYCIN ANHYDROUS
     Indication: Skin infection
     Route: 065
     Dates: start: 20170613, end: 20191211
  20. CETIRIZINE [Concomitant]
     Active Substance: CETIRIZINE HYDROCHLORIDE
     Indication: Multiple allergies
     Route: 065
     Dates: start: 20180418, end: 20200504
  21. CEPHALEXIN [Concomitant]
     Active Substance: CEPHALEXIN
     Indication: Fungal infection
     Route: 065
     Dates: start: 20160916, end: 20190111
  22. VITAMIN B12 [Concomitant]
     Active Substance: CYANOCOBALAMIN
     Indication: Anaemia
     Route: 065
     Dates: start: 20190129
  23. VITAMIN B12 [Concomitant]
     Active Substance: CYANOCOBALAMIN
     Indication: Anaemia
     Route: 065
     Dates: start: 20170101
  24. VENTOLIN HFA [Concomitant]
     Active Substance: ALBUTEROL SULFATE
     Indication: Multiple allergies
     Route: 065
     Dates: start: 20160101
  25. ERGOCALCIFEROL [Concomitant]
     Active Substance: ERGOCALCIFEROL
     Indication: Nutritional supplementation
     Route: 065
     Dates: start: 20100101
  26. MAGNESIUM OXIDE [Concomitant]
     Active Substance: MAGNESIUM OXIDE
     Indication: Nutritional supplementation
     Route: 065
     Dates: start: 20100101
  27. FIBER [Concomitant]
     Active Substance: PSYLLIUM HUSK
     Indication: Constipation
     Route: 065
     Dates: start: 20000101
  28. CALCIUM [Concomitant]
     Active Substance: CALCIUM
     Indication: Nutritional supplementation
     Route: 065
     Dates: start: 20050101
  29. CRANBERRY [Concomitant]
     Active Substance: CRANBERRY
     Indication: Nutritional supplementation
     Route: 065
     Dates: start: 20050101

REACTIONS (3)
  - Visual impairment [Unknown]
  - Neovascular age-related macular degeneration [Not Recovered/Not Resolved]
  - Retinal pigmentation [Unknown]

NARRATIVE: CASE EVENT DATE: 20181001
